FAERS Safety Report 15233368 (Version 1)
Quarter: 2018Q3

REPORT INFORMATION
  Report Type: Report from Study
  Country: DE (occurrence: DE)
  Receive Date: 20180802
  Receipt Date: 20180802
  Transmission Date: 20181010
  Serious: Yes (Hospitalization)
  Sender: FDA-Public Use
  Company Number: DE-TEVA-2018-DE-932793

PATIENT
  Age: 71 Year
  Sex: Female
  Weight: 60 kg

DRUGS (54)
  1. IRINOTECAN [Suspect]
     Active Substance: IRINOTECAN
     Route: 042
     Dates: start: 20130528
  2. IRINOTECAN [Suspect]
     Active Substance: IRINOTECAN
     Route: 042
     Dates: start: 20130716
  3. 5?FU [Suspect]
     Active Substance: FLUOROURACIL
     Route: 040
     Dates: start: 20130820, end: 20130822
  4. 5?FU [Suspect]
     Active Substance: FLUOROURACIL
     Route: 040
     Dates: start: 20130430, end: 20130502
  5. 5?FU [Suspect]
     Active Substance: FLUOROURACIL
     Route: 041
     Dates: start: 20130805
  6. METOHEXAL (GERMANY) [Concomitant]
     Dosage: 95 MILLIGRAM DAILY; DAILY DOSE: 95 MG MILLGRAM(S) EVERY DAYS
     Route: 048
  7. IRINOTECAN [Suspect]
     Active Substance: IRINOTECAN
     Indication: BREAST CANCER
     Route: 042
     Dates: start: 20130514
  8. IRINOTECAN [Suspect]
     Active Substance: IRINOTECAN
     Dosage: DAILY DOSE: 280 MG MILLGRAM(S) EVERY 2 WEEKS
     Route: 042
     Dates: start: 20130430
  9. IRINOTECAN [Suspect]
     Active Substance: IRINOTECAN
     Route: 042
     Dates: start: 20131203
  10. IRINOTECAN [Suspect]
     Active Substance: IRINOTECAN
     Route: 042
     Dates: start: 20130702
  11. 5?FU [Suspect]
     Active Substance: FLUOROURACIL
     Route: 040
     Dates: start: 20140805, end: 20140807
  12. 5?FU [Suspect]
     Active Substance: FLUOROURACIL
     Route: 041
     Dates: start: 20130528
  13. 5?FU [Suspect]
     Active Substance: FLUOROURACIL
     Route: 041
     Dates: start: 20131015
  14. FOLINIC ACID [Suspect]
     Active Substance: LEUCOVORIN
     Route: 042
     Dates: start: 20131203
  15. AVASTIN [Suspect]
     Active Substance: BEVACIZUMAB
     Dosage: DAILY DOSE: 300 MG MILLGRAM(S) EVERY 2 WEEKS
     Route: 042
     Dates: start: 20140114, end: 20140114
  16. IRINOTECAN [Suspect]
     Active Substance: IRINOTECAN
     Route: 042
     Dates: start: 20140114
  17. 5?FU [Suspect]
     Active Substance: FLUOROURACIL
     Route: 041
     Dates: start: 20130619
  18. FOLINIC ACID [Suspect]
     Active Substance: LEUCOVORIN
     Route: 042
     Dates: start: 20130805
  19. MCP DROPS [Concomitant]
     Indication: VOMITING
     Dosage: 90 GTT DAILY; DAILY DOSE: 90 GTT DROP(S) EVERY DAYS
     Route: 048
  20. PANTOPRAZOL [Concomitant]
     Active Substance: PANTOPRAZOLE SODIUM
     Indication: ULCER
     Dosage: 80 MILLIGRAM DAILY; DAILY DOSE: 80 MG MILLGRAM(S) EVERY DAYS
     Route: 048
  21. 5?FU [Suspect]
     Active Substance: FLUOROURACIL
     Indication: BREAST CANCER
     Route: 040
     Dates: start: 20130716, end: 20130718
  22. 5?FU [Suspect]
     Active Substance: FLUOROURACIL
     Route: 040
     Dates: start: 20131015, end: 20131017
  23. 5?FU [Suspect]
     Active Substance: FLUOROURACIL
     Route: 040
     Dates: start: 20131203, end: 20131205
  24. 5?FU [Suspect]
     Active Substance: FLUOROURACIL
     Route: 041
     Dates: start: 20130702
  25. 5?FU [Suspect]
     Active Substance: FLUOROURACIL
     Route: 040
     Dates: start: 20140114, end: 20140116
  26. 5?FU [Suspect]
     Active Substance: FLUOROURACIL
     Route: 040
     Dates: start: 20140619, end: 20140621
  27. FOLINIC ACID [Suspect]
     Active Substance: LEUCOVORIN
     Indication: BREAST CANCER
     Route: 042
     Dates: start: 20131015
  28. FOLINIC ACID [Suspect]
     Active Substance: LEUCOVORIN
     Route: 042
     Dates: start: 20130619
  29. AVASTIN [Suspect]
     Active Substance: BEVACIZUMAB
     Dosage: DAILY DOSE: 300 MG MILLGRAM(S) EVERY 2 WEEKS
     Route: 042
     Dates: start: 20130430, end: 20130430
  30. IRINOTECAN [Suspect]
     Active Substance: IRINOTECAN
     Route: 042
     Dates: start: 20130903
  31. IRINOTECAN [Suspect]
     Active Substance: IRINOTECAN
     Route: 042
     Dates: start: 20130820
  32. 5?FU [Suspect]
     Active Substance: FLUOROURACIL
     Route: 041
     Dates: start: 20131203
  33. 5?FU [Suspect]
     Active Substance: FLUOROURACIL
     Route: 041
     Dates: start: 20140114
  34. FOLINIC ACID [Suspect]
     Active Substance: LEUCOVORIN
     Route: 042
     Dates: start: 20130716
  35. FOLINIC ACID [Suspect]
     Active Substance: LEUCOVORIN
     Route: 042
     Dates: start: 20130903
  36. IRINOTECAN [Suspect]
     Active Substance: IRINOTECAN
     Route: 042
     Dates: start: 20130619
  37. 5?FU [Suspect]
     Active Substance: FLUOROURACIL
     Route: 041
     Dates: start: 20130820
  38. 5?FU [Suspect]
     Active Substance: FLUOROURACIL
     Dosage: DAILY DOSE: 4500 MG MILLGRAM(S) EVERY 2 WEEKS
     Route: 041
     Dates: start: 20130430
  39. 5?FU [Suspect]
     Active Substance: FLUOROURACIL
     Route: 040
     Dates: start: 20130903, end: 20130905
  40. 5?FU [Suspect]
     Active Substance: FLUOROURACIL
     Route: 040
     Dates: start: 20130528, end: 20130530
  41. FOLINIC ACID [Suspect]
     Active Substance: LEUCOVORIN
     Route: 042
     Dates: start: 20130702
  42. FOLINIC ACID [Suspect]
     Active Substance: LEUCOVORIN
     Route: 042
     Dates: start: 20130820
  43. AVASTIN [Suspect]
     Active Substance: BEVACIZUMAB
     Dosage: DAILY DOSE: 300 MG MILLGRAM(S) EVERY 2 WEEKS
     Route: 042
     Dates: start: 20130528, end: 20130528
  44. IRINOTECAN [Suspect]
     Active Substance: IRINOTECAN
     Route: 042
     Dates: start: 20130805
  45. IRINOTECAN [Suspect]
     Active Substance: IRINOTECAN
     Route: 042
     Dates: start: 20131015
  46. FOLINIC ACID [Suspect]
     Active Substance: LEUCOVORIN
     Dosage: DAILY DOSE: 640 MG MILLGRAM(S) EVERY 2 WEEKS
     Route: 042
     Dates: start: 20130430
  47. FOLINIC ACID [Suspect]
     Active Substance: LEUCOVORIN
     Route: 042
     Dates: start: 20130528
  48. FOLINIC ACID [Suspect]
     Active Substance: LEUCOVORIN
     Route: 042
     Dates: start: 20140114
  49. 5?FU [Suspect]
     Active Substance: FLUOROURACIL
     Route: 040
     Dates: start: 20130514, end: 20130516
  50. 5?FU [Suspect]
     Active Substance: FLUOROURACIL
     Route: 041
     Dates: start: 20130716
  51. 5?FU [Suspect]
     Active Substance: FLUOROURACIL
     Route: 041
     Dates: start: 20130903
  52. 5?FU [Suspect]
     Active Substance: FLUOROURACIL
     Route: 041
     Dates: start: 20130514
  53. FOLINIC ACID [Suspect]
     Active Substance: LEUCOVORIN
     Route: 042
     Dates: start: 20130514
  54. AVASTIN [Suspect]
     Active Substance: BEVACIZUMAB
     Indication: BREAST CANCER
     Dosage: DAILY DOSE: 300 MG MILLGRAM(S) EVERY 2 WEEKS
     Route: 042
     Dates: start: 20131203, end: 20131203

REACTIONS (7)
  - Abdominal pain upper [Recovered/Resolved]
  - Gastrointestinal haemorrhage [Recovered/Resolved]
  - Abdominal pain [Recovered/Resolved]
  - Cholangitis [Recovered/Resolved]
  - Anaemia [Recovered/Resolved]
  - Cholelithiasis [Recovered/Resolved]
  - Abdominal pain [Not Recovered/Not Resolved]

NARRATIVE: CASE EVENT DATE: 20130430
